FAERS Safety Report 8362330-0 (Version None)
Quarter: 2012Q2

REPORT INFORMATION
  Report Type: 
  Country: None (occurrence: None)
  Receive Date: 20120516
  Receipt Date: 20120501
  Transmission Date: 20120825
  Serious: Yes (Other)
  Sender: FDA-Public Use
  Company Number: FR-PAR PHARMACEUTICAL, INC-2012SCPR004361

PATIENT

DRUGS (3)
  1. VERAPAMIL [Suspect]
     Indication: CLUSTER HEADACHE
     Dosage: 240 MG, TWICE DAILY
     Route: 048
     Dates: start: 20070601
  2. VERAPAMIL [Suspect]
     Indication: PROPHYLAXIS
  3. SUMATRIPTAN [Suspect]
     Indication: CLUSTER HEADACHE
     Dosage: 1-2 INJECTIONS PER MONTH
     Route: 058
     Dates: start: 20070601, end: 20100201

REACTIONS (2)
  - OFF LABEL USE [None]
  - VISUAL FIELD DEFECT [None]
